FAERS Safety Report 7441750-2 (Version None)
Quarter: 2011Q2

REPORT INFORMATION
  Report Type: 
  Country: None (occurrence: None)
  Receive Date: 20110428
  Receipt Date: 20110408
  Transmission Date: 20111010
  Serious: Yes (Hospitalization, Other)
  Sender: FDA-Public Use
  Company Number: AU-BRISTOL-MYERS SQUIBB COMPANY-15640170

PATIENT
  Age: 46 Year
  Sex: Male

DRUGS (6)
  1. ACETAMINOPHEN [Suspect]
     Dates: start: 20100101
  2. ESCITALOPRAM [Interacting]
  3. PAROXETINE HCL [Suspect]
     Dates: start: 20100101
  4. CODEINE PHOSPHATE [Suspect]
     Dates: start: 20100101
  5. IRBESARTAN + HCTZ [Interacting]
     Indication: HYPERTENSION
     Dosage: 1DF=300/12.5MG(312.5MG)
     Route: 065
  6. QUETIAPINE FUMARATE [Interacting]
     Indication: AGITATION
     Route: 065
     Dates: start: 20100101

REACTIONS (8)
  - MULTIPLE DRUG OVERDOSE [None]
  - HYPOTENSION [None]
  - FALL [None]
  - LIVER FUNCTION TEST ABNORMAL [None]
  - RENAL FUNCTION TEST ABNORMAL [None]
  - DRUG INTERACTION [None]
  - ADJUSTMENT DISORDER WITH DEPRESSED MOOD [None]
  - SUICIDAL IDEATION [None]
